FAERS Safety Report 16977474 (Version 1)
Quarter: 2019Q4

REPORT INFORMATION
  Report Type: Spontaneous
  Country: BR (occurrence: BR)
  Receive Date: 20191031
  Receipt Date: 20191031
  Transmission Date: 20200122
  Serious: Yes (Hospitalization, Other)
  Sender: FDA-Public Use
  Company Number: BR-BRISTOL-MYERS SQUIBB COMPANY-BMS-2019-101760

PATIENT
  Age: 81 Year
  Sex: Female

DRUGS (2)
  1. HYDREA [Suspect]
     Active Substance: HYDROXYUREA
     Indication: PLATELET DISORDER
     Dosage: 500 MILLIGRAM, QD (WEEKLY TWICE 500 MG TWICE A DSY AND 5 DAYS ONCE IN A DAY).
     Route: 048
  2. HYDREA [Suspect]
     Active Substance: HYDROXYUREA
     Indication: CEREBROVASCULAR ACCIDENT
     Route: 065

REACTIONS (5)
  - Product taste abnormal [Unknown]
  - Ovarian disorder [Unknown]
  - Uterine disorder [Unknown]
  - Product physical issue [Unknown]
  - Tooth disorder [Unknown]

NARRATIVE: CASE EVENT DATE: 20191019
